FAERS Safety Report 15997513 (Version 1)
Quarter: 2019Q1

REPORT INFORMATION
  Report Type: Spontaneous
  Country: BE (occurrence: BE)
  Receive Date: 20190222
  Receipt Date: 20190222
  Transmission Date: 20190418
  Serious: Yes (Death)
  Sender: FDA-Public Use
  Company Number: BE-LUNDBECK-DKLU2060940

PATIENT
  Age: 42 Year
  Sex: Male

DRUGS (2)
  1. SERTRALINE [Suspect]
     Active Substance: SERTRALINE HYDROCHLORIDE
     Indication: DEPRESSION
     Route: 048
     Dates: start: 20190115, end: 20190116
  2. FRISIUM [Suspect]
     Active Substance: CLOBAZAM
     Indication: ANXIETY
     Dosage: 1 TO 3 TABLETS A DAY
     Route: 048
     Dates: start: 20190115, end: 20190116

REACTIONS (1)
  - Completed suicide [Fatal]

NARRATIVE: CASE EVENT DATE: 20190116
